FAERS Safety Report 25620121 (Version 1)
Quarter: 2025Q3

REPORT INFORMATION
  Report Type: Spontaneous
  Country: EU (occurrence: EU)
  Receive Date: 20250730
  Receipt Date: 20250730
  Transmission Date: 20251020
  Serious: Yes (Life-Threatening, Other)
  Sender: CHEPLAPHARM
  Company Number: None

PATIENT
  Age: 60 Year
  Sex: Female
  Weight: 67 kg

DRUGS (16)
  1. OLANZAPINE [Suspect]
     Active Substance: OLANZAPINE
     Indication: Mania
     Dosage: DAILY DOSE: 20 MILLIGRAM
     Route: 048
     Dates: start: 20250327, end: 20250622
  2. OLANZAPINE [Suspect]
     Active Substance: OLANZAPINE
     Indication: Mania
     Dosage: DAILY DOSE: 15 MILLIGRAM
     Route: 048
     Dates: start: 20250623
  3. OLANZAPINE [Suspect]
     Active Substance: OLANZAPINE
     Indication: Mania
     Dosage: DAILY DOSE: 25 MILLIGRAM
     Route: 048
  4. LOXAPINE [Suspect]
     Active Substance: LOXAPINE
     Indication: Agitation
     Dosage: DAILY DOSE: 70 MILLIGRAM
     Route: 048
     Dates: start: 20250327, end: 20250619
  5. LOXAPINE [Suspect]
     Active Substance: LOXAPINE
     Indication: Agitation
     Dosage: DAILY DOSE: 40 MILLIGRAM
     Route: 048
     Dates: start: 20250620, end: 20250622
  6. LOXAPINE [Suspect]
     Active Substance: LOXAPINE
     Indication: Agitation
     Dosage: DAILY DOSE: 35 MILLIGRAM
     Route: 048
     Dates: start: 20250623
  7. LOXAPINE [Suspect]
     Active Substance: LOXAPINE
     Indication: Agitation
     Dosage: DAILY DOSE: 50 MILLIGRAM
     Route: 048
  8. OXAZEPAM [Suspect]
     Active Substance: OXAZEPAM
  9. VALIUM [Suspect]
     Active Substance: DIAZEPAM
     Indication: Anxiety
     Dosage: DAILY DOSE: 10 MILLIGRAM
     Route: 048
     Dates: start: 20250328
  10. VALIUM [Suspect]
     Active Substance: DIAZEPAM
     Indication: Anxiety
     Route: 048
     Dates: start: 20250620
  11. MIANSERIN HYDROCHLORIDE [Suspect]
     Active Substance: MIANSERIN HYDROCHLORIDE
     Indication: Depression
     Dosage: DAILY DOSE: 1 DOSAGE FORM
     Route: 048
     Dates: start: 20250603, end: 20250622
  12. TAMSULOSIN HYDROCHLORIDE [Concomitant]
     Active Substance: TAMSULOSIN HYDROCHLORIDE
     Indication: Urinary tract disorder
     Dosage: DAILY DOSE: 0.4 MILLIGRAM
     Route: 048
     Dates: start: 20250528, end: 20250622
  13. PANTOPRAZOLE [Concomitant]
     Active Substance: PANTOPRAZOLE
     Dosage: DAILY DOSE: 20 MILLIGRAM
     Route: 048
  14. KARDEGIC [Concomitant]
     Active Substance: ASPIRIN DL-LYSINE
     Indication: Cardiovascular event prophylaxis
     Dosage: IN SINGLE-DOSE SACHET?DAILY DOSE: 1 DOSAGE FORM
     Route: 048
  15. ATORVASTATIN [Concomitant]
     Active Substance: ATORVASTATIN
     Indication: Dyslipidaemia
     Dosage: DAILY DOSE: 40 MILLIGRAM
     Route: 048
  16. AZATHIOPRINE [Concomitant]
     Active Substance: AZATHIOPRINE
     Indication: Crohn^s disease
     Dosage: DAILY DOSE: 100 MILLIGRAM
     Route: 048

REACTIONS (4)
  - Choking [Recovered/Resolved]
  - Cardio-respiratory arrest [Unknown]
  - Loss of consciousness [Recovered/Resolved]
  - Hepatic enzyme decreased [Unknown]

NARRATIVE: CASE EVENT DATE: 20250622
